FAERS Safety Report 4327537-8 (Version None)
Quarter: 2004Q1

REPORT INFORMATION
  Report Type: 
  Country: None (occurrence: None)
  Receive Date: 20040330
  Receipt Date: 20040330
  Transmission Date: 20041129
  Serious: Yes (Death)
  Sender: FDA-Public Use
  Company Number: None

PATIENT
  Age: 67 Year
  Sex: Male
  Weight: 119.7496 kg

DRUGS (6)
  1. PHENTERMINE [Suspect]
     Indication: WEIGHT DECREASED
     Dosage: ONE BID ORAL
     Route: 048
     Dates: start: 20021224, end: 20030324
  2. MICARDIS [Concomitant]
  3. PRAVACHOL [Concomitant]
  4. TARKA [Concomitant]
  5. ASPIRIN [Concomitant]
  6. M.V.I. [Concomitant]

REACTIONS (14)
  - ATRIAL FLUTTER [None]
  - ATRIOVENTRICULAR BLOCK [None]
  - BLOOD PRESSURE DECREASED [None]
  - CARDIAC FAILURE CONGESTIVE [None]
  - COMA [None]
  - EJECTION FRACTION DECREASED [None]
  - FALL [None]
  - HEART RATE INCREASED [None]
  - OXYGEN SATURATION DECREASED [None]
  - PULMONARY OEDEMA [None]
  - PULSE ABSENT [None]
  - RESPIRATORY RATE INCREASED [None]
  - VENTRICULAR DYSFUNCTION [None]
  - WEIGHT DECREASED [None]
